FAERS Safety Report 20964345 (Version 2)
Quarter: 2022Q3

REPORT INFORMATION
  Report Type: Spontaneous
  Country: CH (occurrence: CH)
  Receive Date: 20220615
  Receipt Date: 20220824
  Transmission Date: 20221027
  Serious: Yes (Other)
  Sender: FDA-Public Use
  Company Number: None

PATIENT
  Age: 28 Year
  Sex: Male

DRUGS (10)
  1. LORAZEPAM [Interacting]
     Active Substance: LORAZEPAM
     Dosage: 2.5 MG, 2X/DAY
     Route: 048
     Dates: end: 20220520
  2. LORAZEPAM [Interacting]
     Active Substance: LORAZEPAM
     Dosage: 1 MG IN THE MORNING AND 2.5 MG IN THE EVENING, DAILY
     Route: 048
     Dates: start: 20220521, end: 20220601
  3. LORAZEPAM [Interacting]
     Active Substance: LORAZEPAM
     Dosage: 2.5 MG, 1X/DAY
     Route: 048
     Dates: start: 20220602, end: 20220611
  4. LORAZEPAM [Interacting]
     Active Substance: LORAZEPAM
     Dosage: 2 MG, 1X/DAY
     Route: 048
     Dates: start: 20220612, end: 20220630
  5. LORAZEPAM [Interacting]
     Active Substance: LORAZEPAM
     Dosage: 1 MG, 1X/DAY
     Route: 048
     Dates: start: 20220701
  6. ZUCLOPENTHIXOL HYDROCHLORIDE [Interacting]
     Active Substance: ZUCLOPENTHIXOL HYDROCHLORIDE
     Indication: Schizophrenia
     Dosage: UP TO 20 MG, MORNING, DAILY
     Route: 048
     Dates: start: 202203, end: 20220411
  7. ZUCLOPENTHIXOL HYDROCHLORIDE [Interacting]
     Active Substance: ZUCLOPENTHIXOL HYDROCHLORIDE
     Dosage: 10 MG, EVENING DAILY
     Route: 048
     Dates: start: 20220412, end: 20220414
  8. ZUCLOPENTHIXOL ACETATE [Interacting]
     Active Substance: ZUCLOPENTHIXOL ACETATE
     Dosage: 200 MG EVERY 2 WEEKS
     Dates: start: 20220407
  9. AKINETON [Concomitant]
     Active Substance: BIPERIDEN HYDROCHLORIDE
  10. VITAMIN D3 [Concomitant]
     Active Substance: CHOLECALCIFEROL

REACTIONS (4)
  - Potentiating drug interaction [Not Recovered/Not Resolved]
  - Disturbance in attention [Recovered/Resolved]
  - Sedation [Not Recovered/Not Resolved]
  - Antipsychotic drug level decreased [Unknown]

NARRATIVE: CASE EVENT DATE: 20220301
